FAERS Safety Report 23924023 (Version 3)
Quarter: 2024Q3

REPORT INFORMATION
  Report Type: Report from Study
  Country: CR (occurrence: CR)
  Receive Date: 20240531
  Receipt Date: 20240712
  Transmission Date: 20241017
  Serious: Yes (Other)
  Sender: NOVARTIS
  Company Number: CR-002147023-NVSC2024CR114544

PATIENT
  Sex: Male
  Weight: 83 kg

DRUGS (4)
  1. EXFORGE HCT [Suspect]
     Active Substance: AMLODIPINE BESYLATE\HYDROCHLOROTHIAZIDE\VALSARTAN
     Indication: Hypertension
     Dosage: 160 MG
     Route: 048
     Dates: end: 2019
  2. HYDROCHLOROTHIAZIDE\VALSARTAN [Suspect]
     Active Substance: HYDROCHLOROTHIAZIDE\VALSARTAN
     Indication: Hypertension
     Dosage: 320 MG VALSARTAN AND 25 MG HYDROCHLOROTHIAZIDE, QD
     Route: 048
     Dates: start: 2018, end: 202405
  3. DIOVAN [Suspect]
     Active Substance: VALSARTAN
     Indication: Hypertension
     Dosage: 160 MG, QD
     Route: 048
     Dates: start: 202405, end: 202405
  4. INSPRA [Concomitant]
     Active Substance: EPLERENONE
     Indication: Product used for unknown indication
     Dosage: 25 MG, QD (1 TABLET)
     Route: 065

REACTIONS (3)
  - Blood pressure fluctuation [Not Recovered/Not Resolved]
  - Drug ineffective [Unknown]
  - Joint swelling [Unknown]
